FAERS Safety Report 18228501 (Version 1)
Quarter: 2020Q3

REPORT INFORMATION
  Report Type: Spontaneous
  Country: US (occurrence: US)
  Receive Date: 20200903
  Receipt Date: 20200903
  Transmission Date: 20201103
  Serious: No
  Sender: FDA-Public Use
  Company Number: US-MYLANLABS-2020M1073180

PATIENT
  Sex: Female
  Weight: 57 kg

DRUGS (1)
  1. KETOCONAZOLE FOAM [Suspect]
     Active Substance: KETOCONAZOLE
     Indication: SKIN DISORDER
     Dosage: TWICE/ DAY
     Route: 061

REACTIONS (5)
  - Product physical consistency issue [Not Recovered/Not Resolved]
  - Contusion [Not Recovered/Not Resolved]
  - Skin irritation [Not Recovered/Not Resolved]
  - Pruritus [Not Recovered/Not Resolved]
  - Drug ineffective [Not Recovered/Not Resolved]
